FAERS Safety Report 9231723 (Version 3)
Quarter: 2013Q2

REPORT INFORMATION
  Report Type: Spontaneous
  Country: US (occurrence: US)
  Receive Date: 20130415
  Receipt Date: 20130617
  Transmission Date: 20140414
  Serious: Yes (Other)
  Sender: FDA-Public Use
  Company Number: US-PFIZER INC-2013084980

PATIENT
  Age: 54 Year
  Sex: 0

DRUGS (1)
  1. CELEBREX [Suspect]
     Indication: BACK PAIN
     Dosage: STRENGTH: 100, 2XDAY
     Dates: start: 2012, end: 201301

REACTIONS (2)
  - Suicidal ideation [Unknown]
  - Pain [Unknown]
